FAERS Safety Report 7195665-8 (Version None)
Quarter: 2010Q4

REPORT INFORMATION
  Report Type: 
  Country: None (occurrence: None)
  Receive Date: 20101223
  Receipt Date: 20101006
  Transmission Date: 20110411
  Serious: No
  Sender: FDA-Public Use
  Company Number: US-AMGEN-KDL443214

PATIENT

DRUGS (9)
  1. ENBREL [Suspect]
     Indication: RHEUMATOID ARTHRITIS
     Dosage: 50 MG, QWK
     Route: 058
     Dates: start: 20080501
  2. INFLUENZA VACCINE [Concomitant]
     Dosage: UNK UNK, UNK
     Dates: start: 20101001
  3. OMEPRAZOLE [Concomitant]
     Dosage: 20 MG, BID
     Route: 048
  4. PREDNISONE [Concomitant]
     Dosage: 5 MG, QD
     Route: 048
  5. ROSUVASTATIN CALCIUM [Concomitant]
     Dosage: 20 MG, QD
     Route: 048
  6. ALENDRONATE SODIUM [Concomitant]
     Dosage: 20 MG, QWK
     Route: 048
  7. DOXEPIN HCL [Concomitant]
     Dosage: 10 MG, UNK
     Route: 048
  8. ALBUTEROL INHALER [Concomitant]
  9. ACETAMINOPHEN AND HYDROCODONE BITARTRATE [Concomitant]

REACTIONS (2)
  - ARTHRALGIA [None]
  - RHEUMATOID ARTHRITIS [None]
